FAERS Safety Report 11073071 (Version 1)
Quarter: 2015Q2

REPORT INFORMATION
  Report Type: Spontaneous
  Country: US (occurrence: US)
  Receive Date: 20150428
  Receipt Date: 20150428
  Transmission Date: 20150821
  Serious: No
  Sender: FDA-Public Use
  Company Number: US-MYLANLABS-2014M1013775

PATIENT
  Sex: Female

DRUGS (2)
  1. LORAZEPAM TABLETS, USP [Suspect]
     Active Substance: LORAZEPAM
     Indication: INSOMNIA
     Dosage: 2 MG, HS
     Route: 048
     Dates: start: 201406, end: 20141207
  2. LORAZEPAM TABLETS, USP [Suspect]
     Active Substance: LORAZEPAM
     Indication: OFF LABEL USE

REACTIONS (5)
  - Depression [Recovered/Resolved]
  - Headache [Recovered/Resolved]
  - Insomnia [Recovered/Resolved]
  - Drug ineffective for unapproved indication [Recovered/Resolved]
  - Memory impairment [Recovered/Resolved]

NARRATIVE: CASE EVENT DATE: 2014
